FAERS Safety Report 10742811 (Version 2)
Quarter: 2015Q1

REPORT INFORMATION
  Report Type: Report from Study
  Country: MX (occurrence: MX)
  Receive Date: 20150127
  Receipt Date: 20150210
  Transmission Date: 20150721
  Serious: Yes (Other)
  Sender: FDA-Public Use
  Company Number: PHHY2014MX154885

PATIENT
  Sex: Female

DRUGS (6)
  1. ZELMAC [Suspect]
     Active Substance: TEGASEROD
     Indication: HYPERTENSION
     Dosage: 1 DF (6 MG), BID, ONE AT MORNING AND ONE AT NIGHT
     Route: 048
     Dates: end: 20150125
  2. CO-DIOVAN [Suspect]
     Active Substance: HYDROCHLOROTHIAZIDE\VALSARTAN
     Dosage: UNK
     Route: 048
     Dates: start: 20150129
  3. CO-DIOVAN [Suspect]
     Active Substance: HYDROCHLOROTHIAZIDE\VALSARTAN
     Indication: HYPERTENSION
     Dosage: 80/12.5 MG, UNK
     Route: 048
  4. DIOVAN [Suspect]
     Active Substance: VALSARTAN
     Indication: PRODUCT USED FOR UNKNOWN INDICATION
     Route: 048
  5. CO-DIOVAN [Suspect]
     Active Substance: HYDROCHLOROTHIAZIDE\VALSARTAN
     Dosage: UNK
     Route: 048
  6. CO-DIOVAN [Suspect]
     Active Substance: HYDROCHLOROTHIAZIDE\VALSARTAN
     Dosage: 1 DF (160/12.5 MG), QD
     Route: 048
     Dates: end: 20150125

REACTIONS (6)
  - Pain in extremity [Recovering/Resolving]
  - Spinal deformity [Recovering/Resolving]
  - Nerve compression [Recovered/Resolved]
  - Procedural complication [Unknown]
  - Malaise [Recovering/Resolving]
  - Blood pressure decreased [Recovered/Resolved]
